FAERS Safety Report 6188749-4 (Version None)
Quarter: 2009Q2

REPORT INFORMATION
  Report Type: 
  Country: None (occurrence: None)
  Receive Date: 20090513
  Receipt Date: 20090504
  Transmission Date: 20091009
  Serious: Yes (Death)
  Sender: FDA-Public Use
  Company Number: IT-CELGENEUS-083-21880-09031116

PATIENT
  Sex: Male

DRUGS (11)
  1. REVLIMID [Suspect]
     Route: 048
     Dates: start: 20090303, end: 20090313
  2. LEVOFLOXACIN [Concomitant]
     Indication: BRONCHITIS
     Route: 048
     Dates: start: 20090303, end: 20090313
  3. ORFENADRINE HCL [Concomitant]
     Indication: MUSCLE CONTRACTURE
     Route: 048
     Dates: start: 20090101, end: 20090313
  4. LANSOPRAZOLE [Concomitant]
     Indication: PROPHYLAXIS
     Route: 048
     Dates: start: 20090101, end: 20090313
  5. CLEXANE [Concomitant]
     Indication: PROPHYLAXIS
     Route: 058
     Dates: start: 20090101, end: 20090313
  6. DEXAMETHASONE 4MG TAB [Concomitant]
     Indication: MULTIPLE MYELOMA
     Route: 051
     Dates: start: 20090311, end: 20090313
  7. ALLOPURINOLE [Concomitant]
     Indication: DRUG USE FOR UNKNOWN INDICATION
     Route: 065
  8. FERROUS SULFATE TAB [Concomitant]
     Indication: DRUG USE FOR UNKNOWN INDICATION
  9. RISPERIDONE [Concomitant]
     Indication: DRUG USE FOR UNKNOWN INDICATION
  10. ENOXAPARIN SODIUM [Concomitant]
     Indication: DRUG USE FOR UNKNOWN INDICATION
     Route: 065
  11. DARBEPOETIN ALFA [Concomitant]
     Indication: DRUG USE FOR UNKNOWN INDICATION
     Dosage: UG

REACTIONS (1)
  - CACHEXIA [None]
